FAERS Safety Report 8790858 (Version 2)
Quarter: 2013Q1

REPORT INFORMATION
  Report Type: Spontaneous
  Country: US (occurrence: None)
  Receive Date: 20120906
  Receipt Date: 20130207
  Transmission Date: 20140127
  Serious: Yes (Other)
  Sender: FDA-Public Use
  Company Number: DKLU1084219

PATIENT
  Age: 9 Month
  Sex: Female

DRUGS (5)
  1. SABRIL [Suspect]
     Indication: EPILEPSY
     Dosage: 1 DF DOSAGE FORM, 2 IN 1 D, ORAL
     Route: 048
     Dates: start: 20120726
  2. SABRIL [Suspect]
     Indication: INFANTILE SPASMS
     Dosage: 1 DF DOSAGE FORM, 2 IN 1 D, ORAL
     Route: 048
     Dates: start: 20120726
  3. KEPPRA (LEVETIRACETAM) [Concomitant]
  4. PYRIDOXINE (PYRIDOXINE) [Concomitant]
  5. KLONOPIN(CLONAZEPAM) [Concomitant]

REACTIONS (4)
  - Convulsion [None]
  - Catatonia [None]
  - Muscle spasms [None]
  - Cyanosis [None]
